FAERS Safety Report 4482254-9 (Version None)
Quarter: 2004Q4

REPORT INFORMATION
  Report Type: 
  Country: None (occurrence: None)
  Receive Date: 20041020
  Receipt Date: 20041001
  Transmission Date: 20050328
  Serious: Yes (Other)
  Sender: FDA-Public Use
  Company Number: USA020718430

PATIENT
  Age: 56 Year
  Sex: Female
  Weight: 54 kg

DRUGS (4)
  1. EVISTA [Suspect]
     Indication: OSTEOPENIA
     Dosage: 60 MG/ 1 DAY
     Dates: start: 20020530
  2. EVISTA [Suspect]
     Indication: OSTEOPOROSIS
     Dosage: 60 MG/ 1 DAY
     Dates: start: 20020530
  3. AVAPRO [Concomitant]
  4. LORAZEPAM [Concomitant]

REACTIONS (19)
  - ABNORMAL DREAMS [None]
  - ALOPECIA [None]
  - BACK PAIN [None]
  - BLOOD PRESSURE INCREASED [None]
  - BLOOD THYROID STIMULATING HORMONE DECREASED [None]
  - BONE DENSITY DECREASED [None]
  - BRAIN OEDEMA [None]
  - CHEST DISCOMFORT [None]
  - DIZZINESS [None]
  - FEELING ABNORMAL [None]
  - HYPOTENSION [None]
  - MULTIPLE SCLEROSIS [None]
  - NERVOUSNESS [None]
  - NIGHTMARE [None]
  - PAIN IN EXTREMITY [None]
  - POSTMENOPAUSAL HAEMORRHAGE [None]
  - RESPIRATORY TRACT CONGESTION [None]
  - SENSATION OF HEAVINESS [None]
  - VAGINAL HAEMORRHAGE [None]
